FAERS Safety Report 11515457 (Version 4)
Quarter: 2015Q4

REPORT INFORMATION
  Report Type: Report from Study
  Country: NL (occurrence: NL)
  Receive Date: 20150916
  Receipt Date: 20151211
  Transmission Date: 20160304
  Serious: Yes (Hospitalization)
  Sender: FDA-Public Use
  Company Number: NL-ABBVIE-13P-114-1101281-00

PATIENT
  Age: 36 Year
  Sex: Female
  Weight: 64 kg

DRUGS (14)
  1. LUCRIN [Suspect]
     Active Substance: LEUPROLIDE ACETATE
     Indication: ENDOMETRIOSIS
     Route: 058
     Dates: start: 20121029, end: 20121029
  2. BUDESONIDE. [Concomitant]
     Active Substance: BUDESONIDE
     Indication: PRODUCT USED FOR UNKNOWN INDICATION
     Dosage: 100UG/DO FL 200DO
     Route: 045
  3. OXYCODON [Concomitant]
     Active Substance: OXYCODONE
     Indication: PRODUCT USED FOR UNKNOWN INDICATION
     Route: 065
  4. LUCRIN [Suspect]
     Active Substance: LEUPROLIDE ACETATE
     Route: 058
     Dates: start: 20121205, end: 20131114
  5. DICLOFENAC SODIUM. [Concomitant]
     Active Substance: DICLOFENAC SODIUM
     Indication: PRODUCT USED FOR UNKNOWN INDICATION
     Route: 065
  6. FLIXOTIDE [Concomitant]
     Active Substance: FLUTICASONE PROPIONATE
     Indication: ASTHMA
     Route: 055
  7. DICLOFENAC SODIUM. [Concomitant]
     Active Substance: DICLOFENAC SODIUM
     Route: 065
  8. LANETTE WAX [Concomitant]
     Indication: PRODUCT USED FOR UNKNOWN INDICATION
     Route: 061
  9. LEVOCABASTINE [Concomitant]
     Active Substance: LEVOCABASTINE
     Indication: PRODUCT USED FOR UNKNOWN INDICATION
     Dosage: 0,5MG/ML FL 4ML
     Route: 047
  10. MACROGOL [Concomitant]
     Active Substance: POLYETHYLENE GLYCOLS
     Indication: PRODUCT USED FOR UNKNOWN INDICATION
     Dosage: 1/1-2 TIMES DAILY
     Route: 048
  11. OMEPRAZOLE. [Concomitant]
     Active Substance: OMEPRAZOLE
     Indication: PRODUCT USED FOR UNKNOWN INDICATION
     Route: 065
  12. LUCRIN [Suspect]
     Active Substance: LEUPROLIDE ACETATE
     Indication: ENDOMETRIOSIS
     Route: 058
     Dates: start: 20150617
  13. COLECALCIFEROL [Concomitant]
     Active Substance: CHOLECALCIFEROL
     Indication: PRODUCT USED FOR UNKNOWN INDICATION
     Dosage: 25.000IE=1ML (25.000IE/ML)
     Route: 048
  14. ETHINYLESTRADIOL W/LEVONORGESTREL [Concomitant]
     Active Substance: ETHINYL ESTRADIOL\LEVONORGESTREL
     Indication: PRODUCT USED FOR UNKNOWN INDICATION
     Dosage: 30/150UG
     Route: 065

REACTIONS (16)
  - Diarrhoea [Not Recovered/Not Resolved]
  - Arthralgia [Recovered/Resolved]
  - Vomiting [Not Recovered/Not Resolved]
  - Hot flush [Recovered/Resolved]
  - Fatigue [Not Recovered/Not Resolved]
  - Injection site infection [Recovering/Resolving]
  - Nausea [Not Recovered/Not Resolved]
  - Abdominal rigidity [Recovering/Resolving]
  - Injection site inflammation [Recovering/Resolving]
  - Abdominal pain [Not Recovered/Not Resolved]
  - Loss of consciousness [Recovered/Resolved]
  - Injection site pain [Recovering/Resolving]
  - Gastrointestinal disorder [Not Recovered/Not Resolved]
  - Abdominal distension [Recovering/Resolving]
  - Endometriosis [Not Recovered/Not Resolved]
  - Injection site mass [Not Recovered/Not Resolved]

NARRATIVE: CASE EVENT DATE: 2012
